FAERS Safety Report 18550553 (Version 2)
Quarter: 2020Q4

REPORT INFORMATION
  Report Type: Spontaneous
  Country: NL (occurrence: NL)
  Receive Date: 20201126
  Receipt Date: 20201223
  Transmission Date: 20210114
  Serious: Yes (Other)
  Sender: FDA-Public Use
  Company Number: NL-SA-2020SA333087

PATIENT

DRUGS (1)
  1. RIFAMPICIN [Suspect]
     Active Substance: RIFAMPIN

REACTIONS (1)
  - Haemorrhage [Unknown]
